FAERS Safety Report 14586522 (Version 1)
Quarter: 2018Q1

REPORT INFORMATION
  Report Type: Spontaneous
  Country: SE (occurrence: SE)
  Receive Date: 20180301
  Receipt Date: 20180301
  Transmission Date: 20180509
  Serious: Yes (Other)
  Sender: FDA-Public Use
  Company Number: SE-ABBVIE-18K-150-2274372-00

PATIENT
  Age: 65 Year
  Sex: Female

DRUGS (4)
  1. OMEPRAZOL BLUEFISH [Concomitant]
     Indication: PRODUCT USED FOR UNKNOWN INDICATION
  2. NABUMETONE. [Concomitant]
     Active Substance: NABUMETONE
     Indication: PRODUCT USED FOR UNKNOWN INDICATION
  3. RELIFEX [Concomitant]
     Active Substance: NABUMETONE
     Indication: PRODUCT USED FOR UNKNOWN INDICATION
  4. HUMIRA [Suspect]
     Active Substance: ADALIMUMAB
     Indication: RHEUMATOID ARTHRITIS
     Route: 058
     Dates: start: 20140106, end: 20161021

REACTIONS (1)
  - Tubulointerstitial nephritis [Not Recovered/Not Resolved]
